FAERS Safety Report 21768325 (Version 1)
Quarter: 2022Q4

REPORT INFORMATION
  Report Type: Spontaneous
  Country: US (occurrence: US)
  Receive Date: 20221222
  Receipt Date: 20221222
  Transmission Date: 20230112
  Serious: No
  Sender: FDA-Public Use
  Company Number: US-PERRIGO-22US013380

PATIENT
  Age: 56 Year
  Sex: Female
  Weight: 37.188 kg

DRUGS (19)
  1. NASONEX [Suspect]
     Active Substance: MOMETASONE FUROATE
     Indication: Perennial allergy
     Dosage: 100 MCG, EACH NOSTRIL, QD
     Route: 045
     Dates: start: 20221002, end: 20221004
  2. NASONEX [Suspect]
     Active Substance: MOMETASONE FUROATE
     Indication: Nasal congestion
     Dosage: 50 MCG, SINGLE
     Route: 045
     Dates: start: 20221005, end: 20221005
  3. NASONEX [Suspect]
     Active Substance: MOMETASONE FUROATE
     Indication: Rhinorrhoea
  4. NASONEX [Suspect]
     Active Substance: MOMETASONE FUROATE
     Indication: Sneezing
  5. NASONEX [Suspect]
     Active Substance: MOMETASONE FUROATE
     Indication: Nasal pruritus
  6. NASONEX [Suspect]
     Active Substance: MOMETASONE FUROATE
     Indication: Cough
  7. METOPROLOL [Concomitant]
     Active Substance: METOPROLOL
     Indication: Hypertension
     Dosage: UNK
     Route: 065
     Dates: start: 2007
  8. NORCO [Concomitant]
     Active Substance: ACETAMINOPHEN\HYDROCODONE BITARTRATE
     Indication: Scoliosis
     Dosage: UNK
     Route: 065
     Dates: start: 2007
  9. VITAMINS NOS [Concomitant]
     Active Substance: VITAMINS
     Indication: Supplementation therapy
     Dosage: UNK
     Route: 065
     Dates: start: 2007
  10. CALCIUM [Concomitant]
     Active Substance: CALCIUM
     Indication: Supplementation therapy
     Dosage: UNK
     Route: 065
     Dates: start: 2007
  11. BACLOFEN [Concomitant]
     Active Substance: BACLOFEN
     Indication: Scoliosis
     Dosage: UNK
     Route: 065
     Dates: start: 2007
  12. MOTRIN [Concomitant]
     Active Substance: IBUPROFEN
     Indication: Scoliosis
     Dosage: UNK
     Route: 065
     Dates: start: 2007
  13. GABAPENTIN [Concomitant]
     Active Substance: GABAPENTIN
     Indication: Neuralgia
     Dosage: UNK
     Route: 065
     Dates: start: 2007
  14. GABAPENTIN [Concomitant]
     Active Substance: GABAPENTIN
     Indication: Feeling of relaxation
  15. TRAZODONE [Concomitant]
     Active Substance: TRAZODONE HYDROCHLORIDE
     Indication: Insomnia
     Dosage: UNK
     Route: 065
     Dates: start: 2007
  16. TOPIRAMATE [Concomitant]
     Active Substance: TOPIRAMATE
     Indication: Migraine
     Dosage: UNK
     Route: 065
     Dates: start: 2007
  17. SUMATRIPTAN [Concomitant]
     Active Substance: SUMATRIPTAN
     Indication: Migraine
     Dosage: UNK, PRN
     Route: 065
     Dates: start: 2007
  18. POTASSIUM [Concomitant]
     Active Substance: POTASSIUM
     Indication: Supplementation therapy
     Dosage: UNK
     Route: 065
     Dates: start: 2007
  19. CLARITIN [Concomitant]
     Active Substance: LORATADINE
     Indication: Perennial allergy
     Dosage: UNK
     Route: 065
     Dates: start: 20221004

REACTIONS (3)
  - Drug ineffective [Unknown]
  - Underdose [Unknown]
  - Off label use [Unknown]

NARRATIVE: CASE EVENT DATE: 20221002
